FAERS Safety Report 8243187-5 (Version None)
Quarter: 2012Q1

REPORT INFORMATION
  Report Type: 
  Country: None (occurrence: None)
  Receive Date: 20120329
  Receipt Date: 20120322
  Transmission Date: 20120608
  Serious: Yes (Hospitalization)
  Sender: FDA-Public Use
  Company Number: JP-SANOFI-AVENTIS-2012SA016518

PATIENT
  Age: 73 Year
  Sex: Male

DRUGS (1)
  1. TAXOTERE [Suspect]
     Dosage: ADMINISTRATION AMOUNT:60MG/M2TWO VIALS
     Route: 065
     Dates: start: 20120124

REACTIONS (1)
  - LUNG DISORDER [None]
